FAERS Safety Report 9611072 (Version 1)
Quarter: 2013Q4

REPORT INFORMATION
  Report Type: Spontaneous
  Country: DK (occurrence: DK)
  Receive Date: 20131009
  Receipt Date: 20131009
  Transmission Date: 20140711
  Serious: Yes (Other)
  Sender: FDA-Public Use
  Company Number: DK-SPECTRUM PHARMACEUTICALS, INC.-13-F-DK-00272

PATIENT
  Sex: 0

DRUGS (3)
  1. FLUOROURACIL [Suspect]
     Indication: COLORECTAL CANCER
     Dosage: 400 MG/M2 BOLUS FOLLOWED BY 2400MG/M2 FLAT CONTINUOUS INFUSION FOR 46HR EVERY 2 WEEKS X12 COURSES
     Route: 042
  2. OXALIPLATIN [Suspect]
     Indication: COLORECTAL CANCER
     Dosage: 85 MG/M2, 2-H INFUSION
     Route: 042
  3. FOLINIC ACID [Suspect]
     Indication: COLORECTAL CANCER
     Dosage: 400 MG/M2, 2-H INFUSION
     Route: 042

REACTIONS (5)
  - Cardiotoxicity [Unknown]
  - Cardiotoxicity [Unknown]
  - Angina pectoris [Recovered/Resolved]
  - Angina pectoris [Recovered/Resolved]
  - Proteinuria [Unknown]
